FAERS Safety Report 20700512 (Version 1)
Quarter: 2022Q2

REPORT INFORMATION
  Report Type: Spontaneous
  Country: FR (occurrence: FR)
  Receive Date: 20220412
  Receipt Date: 20220412
  Transmission Date: 20220721
  Serious: Yes (Life-Threatening, Other)
  Sender: FDA-Public Use
  Company Number: None

PATIENT
  Age: 79 Year
  Sex: Female
  Weight: 70 kg

DRUGS (8)
  1. PALBOCICLIB [Suspect]
     Active Substance: PALBOCICLIB
     Indication: Breast cancer metastatic
     Dosage: 100MG DAILY
     Route: 048
     Dates: start: 20210315, end: 20220211
  2. FUROSEMIDE [Concomitant]
     Active Substance: FUROSEMIDE
  3. FENTANYL [Concomitant]
     Active Substance: FENTANYL
  4. LETROZOLE [Concomitant]
     Active Substance: LETROZOLE
  5. DENOSUMAB [Concomitant]
     Active Substance: DENOSUMAB
  6. GABAPENTIN [Concomitant]
     Active Substance: GABAPENTIN
  7. LERCANIDIPINE HYDROCHLORIDE [Concomitant]
     Active Substance: LERCANIDIPINE HYDROCHLORIDE
  8. AMIODARONE [Concomitant]
     Active Substance: AMIODARONE

REACTIONS (1)
  - Gastric antral vascular ectasia [Recovering/Resolving]

NARRATIVE: CASE EVENT DATE: 20220210
